FAERS Safety Report 6167497-0 (Version None)
Quarter: 2009Q2

REPORT INFORMATION
  Report Type: 
  Country: None (occurrence: None)
  Receive Date: 20090424
  Receipt Date: 20090410
  Transmission Date: 20091009
  Serious: Yes (Other)
  Sender: FDA-Public Use
  Company Number: US-GENENTECH-281464

PATIENT
  Sex: Female

DRUGS (2)
  1. AVASTIN [Suspect]
     Indication: OVARIAN CANCER
     Dosage: 10 MG/M2, DAYS1,8,15
     Route: 042
  2. CYCLOPHOSPHAMIDE [Suspect]
     Indication: OVARIAN CANCER
     Dosage: 50 MG, QD
     Route: 048

REACTIONS (17)
  - ACTIVATED PARTIAL THROMBOPLASTIN TIME PROLONGED [None]
  - ARTHRITIS [None]
  - CEREBRAL ISCHAEMIA [None]
  - DISEASE PROGRESSION [None]
  - FATIGUE [None]
  - GASTROINTESTINAL OBSTRUCTION [None]
  - HYPERGLYCAEMIA [None]
  - HYPERTENSION [None]
  - HYPOMAGNESAEMIA [None]
  - HYPONATRAEMIA [None]
  - LYMPHOPENIA [None]
  - NEPHROPATHY TOXIC [None]
  - OEDEMA [None]
  - PAIN [None]
  - PULMONARY TOXICITY [None]
  - THROMBOSIS [None]
  - TRANSAMINASES INCREASED [None]
